FAERS Safety Report 18537790 (Version 2)
Quarter: 2021Q2

REPORT INFORMATION
  Report Type: Spontaneous
  Country: CA (occurrence: CA)
  Receive Date: 20201124
  Receipt Date: 20210519
  Transmission Date: 20210717
  Serious: Yes (Other)
  Sender: FDA-Public Use
  Company Number: CA-TEVA-2020-CA-1851589

PATIENT
  Age: 62 Year
  Sex: Male

DRUGS (8)
  1. FLUTICASONE PROPIONATE. [Suspect]
     Active Substance: FLUTICASONE PROPIONATE
     Indication: ASTHMA
     Dosage: 3000 MICROGRAM DAILY;
     Route: 055
  2. PREDNISONE. [Suspect]
     Active Substance: PREDNISONE
     Dosage: 25 MILLIGRAM DAILY;
     Route: 048
  3. PREDNISONE. [Suspect]
     Active Substance: PREDNISONE
     Indication: ASTHMA
     Dosage: 10 MILLIGRAM DAILY;
     Route: 048
  4. PREDNISONE. [Suspect]
     Active Substance: PREDNISONE
     Dosage: 7.5 MILLIGRAM DAILY;
     Route: 048
  5. BENRALIZUMAB. [Suspect]
     Active Substance: BENRALIZUMAB
     Indication: ASTHMA
     Route: 065
  6. SALMETEROL [Concomitant]
     Active Substance: SALMETEROL
     Indication: ASTHMA
     Dosage: 200 MICROGRAM DAILY;
  7. RESLIZUMAB [Suspect]
     Active Substance: RESLIZUMAB
     Indication: ASTHMA
     Route: 065
     Dates: start: 2014, end: 2018
  8. MEPOLIZUMAB [Suspect]
     Active Substance: MEPOLIZUMAB
     Indication: ASTHMA
     Route: 065
     Dates: start: 2014, end: 2018

REACTIONS (2)
  - Mycobacterium avium complex infection [Unknown]
  - Asthma [Unknown]
